FAERS Safety Report 7592270-6 (Version None)
Quarter: 2011Q3

REPORT INFORMATION
  Report Type: 
  Country: None (occurrence: None)
  Receive Date: 20110706
  Receipt Date: 20110622
  Transmission Date: 20111222
  Serious: Yes (Other)
  Sender: FDA-Public Use
  Company Number: CA-JNJFOC-20100700259

PATIENT
  Sex: Female
  Weight: 81 kg

DRUGS (26)
  1. REMICADE [Suspect]
     Indication: CROHN'S DISEASE
     Route: 042
     Dates: start: 20100719
  2. REMICADE [Suspect]
     Route: 042
     Dates: start: 20081105
  3. REMICADE [Suspect]
     Route: 042
     Dates: start: 20091014
  4. REMICADE [Suspect]
     Route: 042
     Dates: start: 20091208
  5. REMICADE [Suspect]
     Route: 042
     Dates: start: 20081230
  6. REMICADE [Suspect]
     Route: 042
     Dates: start: 20061213
  7. REMICADE [Suspect]
     Route: 042
     Dates: start: 20070613
  8. REMICADE [Suspect]
     Route: 042
     Dates: start: 20090303
  9. REMICADE [Suspect]
     Route: 042
     Dates: start: 20100330
  10. REMICADE [Suspect]
     Route: 042
     Dates: start: 20070220
  11. REMICADE [Suspect]
     Route: 042
     Dates: start: 20071003
  12. REMICADE [Suspect]
     Route: 042
     Dates: start: 20071128
  13. REMICADE [Suspect]
     Route: 042
     Dates: start: 20080514
  14. REMICADE [Suspect]
     Route: 042
     Dates: start: 20080711
  15. REMICADE [Suspect]
     Route: 042
     Dates: start: 20070417
  16. REMICADE [Suspect]
     Route: 042
     Dates: start: 20070808
  17. REMICADE [Suspect]
     Route: 042
     Dates: start: 20080326
  18. REMICADE [Suspect]
     Route: 042
     Dates: start: 20090623
  19. REMICADE [Suspect]
     Route: 042
     Dates: start: 20100202
  20. REMICADE [Suspect]
     Route: 042
     Dates: start: 20080130
  21. REMICADE [Suspect]
     Route: 042
     Dates: start: 20080910
  22. REMICADE [Suspect]
     Route: 042
     Dates: start: 20090818
  23. REMICADE [Suspect]
     Route: 042
     Dates: start: 20061101
  24. REMICADE [Suspect]
     Route: 042
     Dates: start: 20090429
  25. REMICADE [Suspect]
     Route: 042
     Dates: start: 20100525
  26. REMICADE [Suspect]
     Route: 042
     Dates: start: 20061114

REACTIONS (2)
  - ABORTION SPONTANEOUS [None]
  - MATERNAL EXPOSURE DURING PREGNANCY [None]
